FAERS Safety Report 9093393 (Version 2)
Quarter: 2013Q2

REPORT INFORMATION
  Report Type: Spontaneous
  Country: PR (occurrence: PR)
  Receive Date: 20130131
  Receipt Date: 20130418
  Transmission Date: 20140414
  Serious: Yes (Hospitalization, Other)
  Sender: FDA-Public Use
  Company Number: PR-ABBOTT-12P-131-0978501-00

PATIENT
  Age: 51 Year
  Sex: Male
  Weight: 93.07 kg

DRUGS (9)
  1. HUMIRA [Suspect]
     Indication: PSORIASIS
     Route: 058
     Dates: start: 20120815, end: 201211
  2. HUMIRA [Suspect]
     Route: 058
     Dates: start: 20130103, end: 20130228
  3. SYNTHROID [Concomitant]
     Indication: HYPOTHYROIDISM
     Route: 048
     Dates: start: 2000
  4. ANAPRIL [Concomitant]
     Indication: HYPERTENSION
     Route: 048
     Dates: start: 2000
  5. ZANTAC [Concomitant]
     Indication: PROPHYLAXIS
     Route: 048
  6. TORADOL [Concomitant]
     Indication: PAIN
     Route: 048
     Dates: start: 201304
  7. METHOTREXATE [Concomitant]
     Indication: RHEUMATOID ARTHRITIS
     Route: 048
     Dates: start: 201304
  8. CLONAZEPAM [Concomitant]
     Indication: ANXIETY
     Dosage: AT NIGHT
     Route: 048
     Dates: start: 201208
  9. FLUOXETINE [Concomitant]
     Indication: ANXIETY
     Route: 048
     Dates: start: 201208

REACTIONS (6)
  - Convulsion [Recovered/Resolved]
  - Drug ineffective [Recovered/Resolved]
  - Ear infection [Recovered/Resolved]
  - Ear infection [Recovered/Resolved]
  - Rheumatoid arthritis [Recovering/Resolving]
  - Malaise [Unknown]
